FAERS Safety Report 5197099-4 (Version None)
Quarter: 2007Q1

REPORT INFORMATION
  Report Type: 
  Country: None (occurrence: None)
  Receive Date: 20070103
  Receipt Date: 20061206
  Transmission Date: 20070707
  Serious: Yes (Hospitalization, Other)
  Sender: FDA-Public Use
  Company Number: HU-ELI_LILLY_AND_COMPANY-HU200611004832

PATIENT
  Age: 59 Year
  Sex: Male

DRUGS (5)
  1. HUMULIN 70/30 [Suspect]
     Indication: DIABETES MELLITUS
     Route: 058
     Dates: start: 20040101
  2. HUMULIN 70/30 [Suspect]
     Dosage: 4 IU, OTHER
     Route: 058
     Dates: start: 20040101
  3. HUMULIN 70/30 [Suspect]
     Dosage: 16 IU, EACH EVENING
     Route: 058
     Dates: start: 20040101
  4. VALPROATE SODIUM [Concomitant]
     Indication: EPILEPSY
  5. CARBAMAZEPINE [Concomitant]
     Indication: EPILEPSY

REACTIONS (6)
  - ARTHRALGIA [None]
  - FALL [None]
  - PAIN [None]
  - PAIN IN EXTREMITY [None]
  - SPINAL FRACTURE [None]
  - SURGERY [None]
